FAERS Safety Report 5888610-6 (Version None)
Quarter: 2008Q3

REPORT INFORMATION
  Report Type: 
  Country: None (occurrence: None)
  Receive Date: 20080918
  Receipt Date: 20080904
  Transmission Date: 20090109
  Serious: Yes (Death)
  Sender: FDA-Public Use
  Company Number: US-GENENTECH-267548

PATIENT
  Age: 58 Year
  Sex: Female

DRUGS (3)
  1. BEVACIZUMAB [Suspect]
     Indication: BREAST CANCER
     Dosage: 10 MG/KG, DAYS 2 AND 16
     Route: 042
     Dates: start: 20080617
  2. VORINOSTAT [Suspect]
     Indication: BREAST CANCER
     Dosage: 300 MG, BID
     Route: 048
     Dates: start: 20080617
  3. PACLITAXEL [Concomitant]
     Indication: BREAST CANCER
     Dosage: 90 MG/M2, DAYS 2, 9, 16
     Route: 042
     Dates: start: 20080617

REACTIONS (1)
  - SUDDEN DEATH [None]
